FAERS Safety Report 16989257 (Version 1)
Quarter: 2019Q4

REPORT INFORMATION
  Report Type: Spontaneous
  Country: US (occurrence: US)
  Receive Date: 20191101
  Receipt Date: 20191101
  Transmission Date: 20200122
  Serious: Yes (Death)
  Sender: FDA-Public Use
  Company Number: None

PATIENT
  Age: 79 Year
  Sex: Female

DRUGS (12)
  1. PROCHLORPER [Concomitant]
  2. MORPHINE [Concomitant]
     Active Substance: MORPHINE
  3. ALLOPURINOL. [Concomitant]
     Active Substance: ALLOPURINOL
  4. ONDASETRON [Concomitant]
     Active Substance: ONDANSETRON
  5. ZOLEDRONIC ACID [Suspect]
     Active Substance: ZOLEDRONIC ACID
     Indication: PLASMA CELL MYELOMA
  6. DEXAMETHASON [Concomitant]
     Active Substance: DEXAMETHASONE
  7. OXYCODONE/APAP [Concomitant]
     Active Substance: ACETAMINOPHEN\OXYCODONE HYDROCHLORIDE
  8. GABAPENTIN. [Concomitant]
     Active Substance: GABAPENTIN
  9. XGEVA [Suspect]
     Active Substance: DENOSUMAB
  10. PANTOPRAZOLE [Concomitant]
     Active Substance: PANTOPRAZOLE
  11. PAROXETINE. [Concomitant]
     Active Substance: PAROXETINE
  12. TRAZODONE [Concomitant]
     Active Substance: TRAZODONE HYDROCHLORIDE

REACTIONS (1)
  - Death [None]

NARRATIVE: CASE EVENT DATE: 20191031
